FAERS Safety Report 15255454 (Version 2)
Quarter: 2018Q3

REPORT INFORMATION
  Report Type: Spontaneous
  Country: JP (occurrence: JP)
  Receive Date: 20180808
  Receipt Date: 20180904
  Transmission Date: 20181010
  Serious: Yes (Other)
  Sender: FDA-Public Use
  Company Number: JP-JNJFOC-20180807112

PATIENT
  Sex: Male

DRUGS (2)
  1. XARELTO [Suspect]
     Active Substance: RIVAROXABAN
     Indication: ATRIAL FIBRILLATION
     Route: 048
     Dates: end: 20180802
  2. WARFARIN [Concomitant]
     Active Substance: WARFARIN
     Route: 065

REACTIONS (1)
  - Atrial thrombosis [Unknown]

NARRATIVE: CASE EVENT DATE: 20180802
